FAERS Safety Report 9066755 (Version 1)
Quarter: 2013Q1

REPORT INFORMATION
  Report Type: Report from Study
  Country: US (occurrence: US)
  Receive Date: 20130131
  Receipt Date: 20130131
  Transmission Date: 20140127
  Serious: No
  Sender: FDA-Public Use
  Company Number: US-ABBOTT-12P-163-1013385-00

PATIENT
  Age: 55 Year
  Sex: Male

DRUGS (16)
  1. HUMIRA [Suspect]
     Indication: RHEUMATOID ARTHRITIS
  2. NAPROXEN [Concomitant]
     Indication: PAIN
  3. PREDNISONE [Concomitant]
     Indication: RHEUMATOID ARTHRITIS
  4. ROBAXIN [Concomitant]
     Indication: MUSCLE SPASMS
  5. FLOMAX [Concomitant]
     Indication: PROSTATIC DISORDER
     Dosage: DAILY
  6. LYRICA [Concomitant]
     Indication: PRODUCT USED FOR UNKNOWN INDICATION
  7. DEXILANT [Concomitant]
     Indication: GASTROOESOPHAGEAL REFLUX DISEASE
     Dosage: IN THE MORNING
  8. TESTOSTERONE [Concomitant]
     Indication: BLOOD TESTOSTERONE DECREASED
  9. ACYCLOVIR [Concomitant]
     Indication: HERPES ZOSTER
  10. KLONOPIN [Concomitant]
     Indication: ANXIETY
     Dosage: UP TO 3 TIMES A DAY
  11. OXYCONTIN [Concomitant]
     Indication: BREAKTHROUGH PAIN
     Dosage: UP TO 4 PILLS A DAYS
  12. OXYCONTIN [Concomitant]
     Indication: RHEUMATOID ARTHRITIS
  13. MORPHINE [Concomitant]
     Indication: PAIN
  14. CYMBALTA [Concomitant]
     Indication: DEPRESSION
  15. BIAXIN [Concomitant]
     Indication: PRODUCT USED FOR UNKNOWN INDICATION
  16. CARAFATE [Concomitant]
     Indication: FLUID IMBALANCE

REACTIONS (1)
  - Rheumatoid arthritis [Not Recovered/Not Resolved]
